FAERS Safety Report 8370651-0 (Version None)
Quarter: 2012Q1

REPORT INFORMATION
  Report Type: 
  Country: None (occurrence: None)
  Receive Date: 20120323
  Receipt Date: 20111209
  Transmission Date: 20120608
  Serious: Yes (Other)
  Sender: FDA-Public Use
  Company Number: 163-21880-11093223

PATIENT
  Age: 89 Year
  Sex: Female

DRUGS (3)
  1. REVLIMID [Suspect]
     Indication: 5Q MINUS SYNDROME
     Dosage: 10 MG, 1 IN 1 D, PO : 5 MG, DAILY X 21 DAYS, PO
     Route: 048
     Dates: start: 20100301, end: 20110501
  2. REVLIMID [Suspect]
     Indication: 5Q MINUS SYNDROME
     Dosage: 10 MG, 1 IN 1 D, PO : 5 MG, DAILY X 21 DAYS, PO
     Route: 048
     Dates: start: 20101101
  3. REVLIMID [Suspect]
     Indication: 5Q MINUS SYNDROME
     Dosage: 10 MG, 1 IN 1 D, PO : 5 MG, DAILY X 21 DAYS, PO
     Route: 048
     Dates: start: 20110927

REACTIONS (7)
  - RASH PRURITIC [None]
  - ASTHENIA [None]
  - HYPERSENSITIVITY [None]
  - DIZZINESS [None]
  - MALAISE [None]
  - LACRIMATION INCREASED [None]
  - GAIT DISTURBANCE [None]
